FAERS Safety Report 20994533 (Version 1)
Quarter: 2022Q2

REPORT INFORMATION
  Report Type: Spontaneous
  Country: CN (occurrence: CN)
  Receive Date: 20220622
  Receipt Date: 20220622
  Transmission Date: 20220721
  Serious: Yes (Hospitalization)
  Sender: FDA-Public Use
  Company Number: CN-BoehringerIngelheim-2022-BI-177044

PATIENT
  Age: 67 Year
  Sex: Female
  Weight: 55.000 kg

DRUGS (3)
  1. IPRATROPIUM BROMIDE [Suspect]
     Active Substance: IPRATROPIUM BROMIDE
     Indication: Cough
     Route: 055
     Dates: start: 20220518, end: 20220519
  2. BUDESONIDE [Suspect]
     Active Substance: BUDESONIDE
     Indication: Cough
     Dosage: SUSPENSION FOR INHALATION
     Route: 055
     Dates: start: 20220518, end: 20220519
  3. TERBUTALINE SULFATE [Suspect]
     Active Substance: TERBUTALINE SULFATE
     Indication: Cough
     Dosage: SUSPENSION
     Route: 055
     Dates: start: 20220518, end: 20220519

REACTIONS (3)
  - Tremor [Recovering/Resolving]
  - Heart rate increased [Recovering/Resolving]
  - Dry mouth [Recovering/Resolving]

NARRATIVE: CASE EVENT DATE: 20220519
